FAERS Safety Report 24425436 (Version 2)
Quarter: 2025Q4

REPORT INFORMATION
  Report Type: Report from Study
  Country: US (occurrence: US)
  Receive Date: 20241011
  Receipt Date: 20251120
  Transmission Date: 20260117
  Serious: Yes (Other)
  Sender: PFIZER
  Company Number: US-PFIZER INC-202400268063

PATIENT
  Age: 57 Year
  Sex: Female

DRUGS (3)
  1. TUKYSA [Suspect]
     Active Substance: TUCATINIB
     Dosage: 300 MG, 2X/DAY
     Dates: start: 20240928
  2. TUKYSA [Suspect]
     Active Substance: TUCATINIB
     Dosage: 300 MG, 2X/DAY
     Route: 048
     Dates: start: 20240930
  3. TUKYSA [Suspect]
     Active Substance: TUCATINIB
     Dosage: 150MG 2 TABLETS TWICE DAILY, ORAL
     Route: 048

REACTIONS (10)
  - Pneumonia mycoplasmal [Unknown]
  - Atypical pneumonia [Unknown]
  - Pulmonary thrombosis [Unknown]
  - Fatigue [Unknown]
  - Somnolence [Unknown]
  - Diarrhoea [Unknown]
  - Petechiae [Unknown]
  - Headache [Unknown]
  - Stomatitis [Unknown]
  - Blood urea increased [Unknown]

NARRATIVE: CASE EVENT DATE: 20240930
